FAERS Safety Report 20072468 (Version 1)
Quarter: 2021Q4

REPORT INFORMATION
  Report Type: Spontaneous
  Country: US (occurrence: US)
  Receive Date: 20211116
  Receipt Date: 20211116
  Transmission Date: 20220304
  Serious: No
  Sender: FDA-Public Use
  Company Number: US-ALVOGEN-2021-ALVOGEN-116567

PATIENT

DRUGS (1)
  1. LISINOPRIL [Suspect]
     Active Substance: LISINOPRIL
     Indication: Product used for unknown indication
     Dosage: 10MG BUT BREAK IN HALF, NEED EVERY OTHER DAY

REACTIONS (4)
  - Hypoglycaemia [Unknown]
  - Rash [Unknown]
  - Asthenia [Unknown]
  - Wrong technique in product usage process [Unknown]
